FAERS Safety Report 4624973-7 (Version None)
Quarter: 2005Q2

REPORT INFORMATION
  Report Type: 
  Country: None (occurrence: None)
  Receive Date: 20050401
  Receipt Date: 20041012
  Transmission Date: 20051028
  Serious: Yes (Hospitalization, Other)
  Sender: FDA-Public Use
  Company Number: JP-BRISTOL-MYERS SQUIBB COMPANY-12735775

PATIENT
  Age: 37 Year
  Sex: Male

DRUGS (11)
  1. GATIFLO TABS 100 MG [Suspect]
     Indication: BRONCHITIS ACUTE
     Dosage: DOSE ACTUALLY TAKEN 200 MG SINGLE DOSE TAKEN ON 22-MAY-2004/SECOND SINGLE DOSE TAKEN 08-OCT-2004
     Route: 048
     Dates: start: 20040522, end: 20041008
  2. SOLANTAL [Suspect]
     Indication: BRONCHITIS ACUTE
     Dosage: DOSE ACTUALLY TAKEN: 100 MG
     Route: 048
     Dates: start: 20040522, end: 20041008
  3. RESPLEN [Concomitant]
     Dosage: DOSE ACTUALLY TAKEN: 30 MG
     Route: 048
     Dates: start: 20041008, end: 20041008
  4. DASEN [Concomitant]
     Dosage: DOSE ACTUALLY TAKEN: 10 MG
     Route: 048
     Dates: start: 20041008, end: 20041008
  5. ADALAT [Concomitant]
     Dosage: 3/26/04 INITIATED THEN 60 MG/DAY 5/14/04- 11/19/04 THEN 11/20/04 TO ONGOING AT 40 MG/DAY
     Route: 048
     Dates: start: 20040326
  6. BLOPRESS [Concomitant]
     Route: 048
     Dates: start: 20040430
  7. FLUTICASONE PROPIONATE [Concomitant]
     Route: 055
     Dates: start: 20040605
  8. MUCOSOLVAN [Concomitant]
     Indication: NASOPHARYNGITIS
     Route: 048
     Dates: start: 20040522, end: 20040601
  9. HUSCODE [Concomitant]
     Route: 048
     Dates: start: 20040522, end: 20040601
  10. THEO-DUR [Concomitant]
     Route: 048
     Dates: start: 20040522, end: 20040601
  11. SPIROPENT [Concomitant]
     Route: 048
     Dates: start: 20040522, end: 20040601

REACTIONS (6)
  - ANAPHYLACTIC REACTION [None]
  - BLOOD PRESSURE DECREASED [None]
  - DEPRESSED LEVEL OF CONSCIOUSNESS [None]
  - DYSPNOEA [None]
  - HYPOAESTHESIA ORAL [None]
  - URTICARIA [None]
